FAERS Safety Report 6010837-3 (Version None)
Quarter: 2008Q4

REPORT INFORMATION
  Report Type: 
  Country: None (occurrence: None)
  Receive Date: 20081216
  Receipt Date: 20081201
  Transmission Date: 20090506
  Serious: Yes (Hospitalization)
  Sender: FDA-Public Use
  Company Number: KV200800720

PATIENT
  Age: 87 Year
  Sex: Female
  Weight: 45.4 kg

DRUGS (3)
  1. ISOSORBIDE MONONITRATE [Suspect]
     Indication: HYPERTENSION
     Dosage: 30 MG, QD, ORAL
     Route: 048
  2. TOPROL-XL [Concomitant]
  3. UNSPECIFIED EYE DROPS [Concomitant]

REACTIONS (4)
  - BLOOD PRESSURE SYSTOLIC INCREASED [None]
  - DIZZINESS [None]
  - PRODUCT QUALITY ISSUE [None]
  - SYNCOPE [None]
